FAERS Safety Report 14715313 (Version 3)
Quarter: 2018Q2

REPORT INFORMATION
  Report Type: Spontaneous
  Country: US (occurrence: US)
  Receive Date: 20180404
  Receipt Date: 20180608
  Transmission Date: 20180711
  Serious: Yes (Hospitalization)
  Sender: FDA-Public Use
  Company Number: US-PFIZER INC-2018134494

PATIENT
  Age: 67 Year
  Sex: Female

DRUGS (7)
  1. SOTALOL. [Concomitant]
     Active Substance: SOTALOL
     Indication: HYPERTROPHIC CARDIOMYOPATHY
     Dosage: 240 MG, 2X/DAY
     Route: 048
  2. POTASSIUM [Concomitant]
     Active Substance: POTASSIUM
     Dosage: 10 MEQ, 2X/DAY (10MEQ EXTENDED RELEASE TABLET TWICE DAILY BY MOUTH)
     Route: 048
  3. LISINOPRIL. [Concomitant]
     Active Substance: LISINOPRIL
     Indication: HYPERTROPHIC CARDIOMYOPATHY
     Dosage: UNKNOWN DOSAGE
  4. XELJANZ XR [Suspect]
     Active Substance: TOFACITINIB CITRATE
     Indication: RHEUMATOID ARTHRITIS
     Dosage: 11 MG, 1X/DAY
     Route: 048
  5. METOPROLOL. [Concomitant]
     Active Substance: METOPROLOL
     Indication: HYPERTROPHIC CARDIOMYOPATHY
     Dosage: 25 MG, 2X/DAY
     Route: 048
  6. LASIX [Concomitant]
     Active Substance: FUROSEMIDE
     Indication: HYPERTROPHIC CARDIOMYOPATHY
     Dosage: 20 MG, 2X/DAY (20MG TABLET TWICE DAILY BY MOUTH, MORNING AND AT 2PM)
     Route: 048
  7. LIPITOR [Concomitant]
     Active Substance: ATORVASTATIN CALCIUM
     Indication: HYPERTROPHIC CARDIOMYOPATHY
     Dosage: 10 MG, 1X/DAY (10MG TABLET ONCE DAILY BY MOUTH AT BEDTIME)
     Route: 048

REACTIONS (2)
  - Limb injury [Unknown]
  - Thrombosis [Recovered/Resolved with Sequelae]

NARRATIVE: CASE EVENT DATE: 201802
